FAERS Safety Report 5612361-6 (Version None)
Quarter: 2008Q1

REPORT INFORMATION
  Report Type: 
  Country: None (occurrence: None)
  Receive Date: 20080204
  Receipt Date: 20080114
  Transmission Date: 20080703
  Serious: Yes (Death, Hospitalization)
  Sender: FDA-Public Use
  Company Number: PHBS2008US01568

PATIENT
  Age: 36 Year
  Sex: Male

DRUGS (4)
  1. METOPROLOL TARTRATE [Suspect]
  2. BUPROPION HCL [Suspect]
     Route: 048
  3. IBUPROFEN [Suspect]
  4. LAMOTRIGINE [Suspect]

REACTIONS (5)
  - AGITATION [None]
  - APNOEA [None]
  - DEPRESSED LEVEL OF CONSCIOUSNESS [None]
  - INTENTIONAL OVERDOSE [None]
  - MYOCLONUS [None]
